FAERS Safety Report 6162241-5 (Version None)
Quarter: 2009Q2

REPORT INFORMATION
  Report Type: 
  Country: None (occurrence: None)
  Receive Date: 20090417
  Receipt Date: 20090417
  Transmission Date: 20091009
  Serious: Yes (Life-Threatening)
  Sender: FDA-Public Use
  Company Number: None

PATIENT
  Age: 41 Year
  Sex: Male
  Weight: 118.3888 kg

DRUGS (13)
  1. JANUVIA [Suspect]
     Indication: ADJUVANT THERAPY
     Dosage: 100 MG TWICE DAILY PO
     Route: 048
     Dates: start: 20090415, end: 20090415
  2. JANUVIA [Suspect]
     Indication: TYPE 2 DIABETES MELLITUS
     Dosage: 100 MG TWICE DAILY PO
     Route: 048
     Dates: start: 20090415, end: 20090415
  3. SEROQUEL [Concomitant]
  4. MIRTAZAPINE [Concomitant]
  5. FEXOFENADINE [Concomitant]
  6. METFORMIN HCL [Concomitant]
  7. LOVASTAIN [Concomitant]
  8. LISINOPRIL [Concomitant]
  9. ASPIRIN [Concomitant]
  10. FOLIC ACID [Concomitant]
  11. MAGNESIUM OXIDE [Concomitant]
  12. HUMALOG [Concomitant]
  13. LANTUS [Concomitant]

REACTIONS (8)
  - ANXIETY [None]
  - DYSSTASIA [None]
  - FEELING HOT [None]
  - FLUSHING [None]
  - MALAISE [None]
  - NAUSEA [None]
  - PALPITATIONS [None]
  - RESPIRATORY DISTRESS [None]
